FAERS Safety Report 10194323 (Version 5)
Quarter: 2015Q4

REPORT INFORMATION
  Report Type: Report from Study
  Country: US (occurrence: US)
  Receive Date: 20140526
  Receipt Date: 20151022
  Transmission Date: 20160304
  Serious: Yes (Hospitalization)
  Sender: FDA-Public Use
  Company Number: US-BIOGENIDEC-2014BI046202

PATIENT
  Age: 57 Year
  Sex: Female

DRUGS (10)
  1. TYSABRI [Suspect]
     Active Substance: NATALIZUMAB
     Indication: MULTIPLE SCLEROSIS
     Route: 042
     Dates: start: 20111004, end: 20140407
  2. FENTOIN [Concomitant]
  3. FISH OIL [Concomitant]
     Active Substance: FISH OIL
  4. CYMBALTA [Concomitant]
     Active Substance: DULOXETINE HYDROCHLORIDE
  5. ZINC [Concomitant]
     Active Substance: ZINC\ZINC CHLORIDE
  6. CALCIUM AND VITAMIN D [Concomitant]
     Active Substance: CALCIUM\VITAMIN D
  7. IRON [Concomitant]
     Active Substance: IRON
  8. ESTROVEN [Concomitant]
     Active Substance: DIETARY SUPPLEMENT
  9. VERAPAMIL [Concomitant]
     Active Substance: VERAPAMIL HYDROCHLORIDE
  10. POTASSIUM [Concomitant]
     Active Substance: POTASSIUM

REACTIONS (10)
  - Memory impairment [Not Recovered/Not Resolved]
  - Ankle fracture [Not Recovered/Not Resolved]
  - Hypoaesthesia [Unknown]
  - Frustration [Unknown]
  - Burns second degree [Unknown]
  - Pelvic fracture [Not Recovered/Not Resolved]
  - Vertigo [Not Recovered/Not Resolved]
  - Bone disorder [Not Recovered/Not Resolved]
  - Fall [Recovered/Resolved]
  - Pain [Unknown]

NARRATIVE: CASE EVENT DATE: 201206
